FAERS Safety Report 12566793 (Version 2)
Quarter: 2016Q3

REPORT INFORMATION
  Report Type: Spontaneous
  Country: HR (occurrence: HR)
  Receive Date: 20160718
  Receipt Date: 20160722
  Transmission Date: 20161109
  Serious: Yes (Life-Threatening, Other)
  Sender: FDA-Public Use
  Company Number: HR-ELI_LILLY_AND_COMPANY-HR201607005584

PATIENT
  Sex: Male

DRUGS (7)
  1. TEGRETOL [Suspect]
     Active Substance: CARBAMAZEPINE
     Indication: PRODUCT USED FOR UNKNOWN INDICATION
     Dosage: 43 DF, UNKNOWN
     Route: 048
     Dates: start: 20160111, end: 20160111
  2. SEROXAT [Suspect]
     Active Substance: PAROXETINE HYDROCHLORIDE
     Indication: PRODUCT USED FOR UNKNOWN INDICATION
     Dosage: 27 DF, UNKNOWN
     Route: 048
     Dates: start: 20160111, end: 20160111
  3. APAURIN [Suspect]
     Active Substance: DIAZEPAM
     Indication: PRODUCT USED FOR UNKNOWN INDICATION
     Dosage: 20 DF, UNKNOWN
     Route: 048
     Dates: start: 20160111, end: 20160111
  4. LEPONEX [Suspect]
     Active Substance: CLOZAPINE
     Indication: PRODUCT USED FOR UNKNOWN INDICATION
     Dosage: 55 DF, UNKNOWN
     Route: 048
     Dates: start: 20160111, end: 20160111
  5. MODITEN                            /00000602/ [Suspect]
     Active Substance: FLUPHENAZINE HYDROCHLORIDE
     Indication: PRODUCT USED FOR UNKNOWN INDICATION
     Dosage: 37 DF, UNKNOWN
     Route: 048
     Dates: start: 20160111, end: 20160111
  6. DULOXETINE HYDROCHLORIDE. [Suspect]
     Active Substance: DULOXETINE HYDROCHLORIDE
     Indication: PRODUCT USED FOR UNKNOWN INDICATION
     Dosage: 17 DF, UNKNOWN
     Route: 048
     Dates: start: 20160111, end: 20160111
  7. SEROQUEL [Suspect]
     Active Substance: QUETIAPINE FUMARATE
     Indication: PRODUCT USED FOR UNKNOWN INDICATION
     Dosage: 37 DF, UNKNOWN
     Route: 048
     Dates: start: 20160111, end: 20160111

REACTIONS (6)
  - Respiratory failure [Unknown]
  - Poisoning deliberate [Unknown]
  - Pain [Unknown]
  - Loss of consciousness [Unknown]
  - Intentional overdose [Unknown]
  - Suicide attempt [Unknown]

NARRATIVE: CASE EVENT DATE: 20160111
